FAERS Safety Report 7551107-1 (Version None)
Quarter: 2011Q2

REPORT INFORMATION
  Report Type: 
  Country: None (occurrence: None)
  Receive Date: 20110616
  Receipt Date: 20110606
  Transmission Date: 20111010
  Serious: Yes (Hospitalization, Other)
  Sender: FDA-Public Use
  Company Number: TW-BRISTOL-MYERS SQUIBB COMPANY-15806292

PATIENT
  Age: 42 Year
  Sex: Male

DRUGS (4)
  1. RISPERIDONE [Concomitant]
     Indication: OBSESSIVE-COMPULSIVE DISORDER
     Dosage: 1DF=2-4MG
  2. QUETIAPINE [Concomitant]
     Indication: OBSESSIVE-COMPULSIVE DISORDER
     Dosage: 1DF=600-800MG
  3. FLUOXETINE HCL [Interacting]
     Indication: OBSESSIVE-COMPULSIVE DISORDER
     Dosage: 1DF:60-80MG/D 80MG/D FOR 1 MONTH
  4. ARIPIPRAZOLE [Suspect]
     Indication: OBSESSIVE-COMPULSIVE DISORDER
     Dosage: DOSE INCREASED TO 15MG/D FOR 1 MONTH 20MG/D FOR 28D DOSE REDUCED TO 10MG/D FOR 7D

REACTIONS (4)
  - LEUKOPENIA [None]
  - DRUG INTERACTION [None]
  - PSYCHOTIC DISORDER [None]
  - TREATMENT NONCOMPLIANCE [None]
